FAERS Safety Report 6198702-2 (Version None)
Quarter: 2009Q2

REPORT INFORMATION
  Report Type: 
  Country: None (occurrence: None)
  Receive Date: 20090521
  Receipt Date: 20090514
  Transmission Date: 20091009
  Serious: Yes (Other)
  Sender: FDA-Public Use
  Company Number: PHHY2009RU12969

PATIENT
  Age: 57 Year
  Sex: Male

DRUGS (5)
  1. TRILEPTAL [Suspect]
     Indication: EPILEPSY
     Dosage: 900 MG, QD
     Route: 048
  2. TRILEPTAL [Suspect]
     Indication: POST-TRAUMATIC EPILEPSY
     Dosage: 1800 MG/DAY
     Route: 048
     Dates: start: 20080101
  3. TRILEPTAL [Suspect]
     Dosage: 600 MG/DAY
     Route: 048
  4. LAMICTAL [Concomitant]
  5. KEPPRA [Concomitant]

REACTIONS (3)
  - CONDITION AGGRAVATED [None]
  - EPILEPSY [None]
  - POOR QUALITY DRUG ADMINISTERED [None]
